FAERS Safety Report 9322110 (Version 4)
Quarter: 2013Q4

REPORT INFORMATION
  Report Type: Spontaneous
  Country: US (occurrence: US)
  Receive Date: 20130531
  Receipt Date: 20131004
  Transmission Date: 20140711
  Serious: No
  Sender: FDA-Public Use
  Company Number: US-GLAXOSMITHKLINE-A1024655A

PATIENT
  Age: 21 Year
  Sex: Female

DRUGS (2)
  1. ALLI [Suspect]
     Indication: WEIGHT LOSS DIET
     Route: 048
  2. DAILY VITAMIN [Concomitant]

REACTIONS (6)
  - Constipation [Recovered/Resolved]
  - Vomiting [Recovered/Resolved]
  - Malaise [Recovered/Resolved]
  - Musculoskeletal chest pain [Recovered/Resolved]
  - Eating disorder [Recovered/Resolved]
  - Diarrhoea [Unknown]
